FAERS Safety Report 10923083 (Version 1)
Quarter: 2015Q1

REPORT INFORMATION
  Report Type: Spontaneous
  Country: FR (occurrence: FR)
  Receive Date: 20150317
  Receipt Date: 20150317
  Transmission Date: 20150721
  Serious: Yes (Life-Threatening, Hospitalization)
  Sender: FDA-Public Use
  Company Number: FR-ELI_LILLY_AND_COMPANY-FR201503002206

PATIENT
  Age: 41 Year
  Sex: Male

DRUGS (4)
  1. PRIMPERAN [Suspect]
     Active Substance: METOCLOPRAMIDE HYDROCHLORIDE
     Indication: PRODUCT USED FOR UNKNOWN INDICATION
     Dosage: 10 MG, UNKNOWN
     Route: 042
     Dates: end: 20140908
  2. ZYPREXA [Suspect]
     Active Substance: OLANZAPINE
     Indication: PRODUCT USED FOR UNKNOWN INDICATION
     Dosage: 7.5 MG, BID
     Route: 048
     Dates: end: 20140907
  3. SERESTA [Concomitant]
     Active Substance: OXAZEPAM
     Dosage: 3 DF, QD
     Route: 065
  4. ZOLOFT [Concomitant]
     Active Substance: SERTRALINE HYDROCHLORIDE
     Dosage: 1 DF, QD
     Route: 065

REACTIONS (10)
  - Ventricular fibrillation [Recovered/Resolved]
  - Supraventricular extrasystoles [Unknown]
  - Anaemia [Unknown]
  - Blood creatinine decreased [Unknown]
  - Cardiac arrest [Recovered/Resolved]
  - Hypopnoea [Unknown]
  - Tremor [Unknown]
  - Ankle fracture [Unknown]
  - Electrocardiogram QT prolonged [Recovered/Resolved]
  - Hyperhidrosis [Unknown]

NARRATIVE: CASE EVENT DATE: 20140908
